FAERS Safety Report 18912732 (Version 1)
Quarter: 2021Q1

REPORT INFORMATION
  Report Type: Spontaneous
  Country: BR (occurrence: BR)
  Receive Date: 20210219
  Receipt Date: 20210219
  Transmission Date: 20210420
  Serious: Yes (Other)
  Sender: FDA-Public Use
  Company Number: BR-ACCORD-217578

PATIENT
  Age: 29 Year
  Sex: Female

DRUGS (7)
  1. CARBOPLATIN. [Suspect]
     Active Substance: CARBOPLATIN
     Indication: LUNG ADENOCARCINOMA
  2. GEMCITABINE/GEMCITABINE HYDROCHLORIDE [Suspect]
     Active Substance: GEMCITABINE\GEMCITABINE HYDROCHLORIDE
     Indication: LUNG ADENOCARCINOMA
  3. MORPHINE [Concomitant]
     Active Substance: MORPHINE
  4. CARBOPLATIN. [Suspect]
     Active Substance: CARBOPLATIN
     Indication: LUNG CARCINOMA CELL TYPE UNSPECIFIED STAGE IV
  5. CODEINE [Concomitant]
     Active Substance: CODEINE
  6. PARACETAMOL [Concomitant]
     Active Substance: ACETAMINOPHEN
  7. METAMIZOLE/METAMIZOLE MAGNESIUM/METAMIZOLE SODIUM/METAMIZOLE SODIUM MONOHYDRATE [Concomitant]
     Active Substance: METAMIZOLE

REACTIONS (1)
  - Toxicity to various agents [Unknown]
